FAERS Safety Report 22300604 (Version 1)
Quarter: 2023Q2

REPORT INFORMATION
  Report Type: Other
  Country: None (occurrence: CN)
  Receive Date: 20230509
  Receipt Date: 20230509
  Transmission Date: 20230722
  Serious: Yes (Hospitalization)
  Sender: FDA-Public Use
  Company Number: CN-B.Braun Medical Inc.-2141298

PATIENT
  Age: 55 Year
  Sex: Female

DRUGS (9)
  1. MEROPENEM\SODIUM CHLORIDE [Suspect]
     Active Substance: MEROPENEM\SODIUM CHLORIDE
     Indication: Anti-infective therapy
  2. CEFMINOX [Concomitant]
     Active Substance: CEFMINOX
  3. GANCICLOVIR [Concomitant]
     Active Substance: GANCICLOVIR
  4. CASPOFUNGIN [Concomitant]
     Active Substance: CASPOFUNGIN
  5. UNSPECIFIED INGREDIENT [Concomitant]
     Active Substance: UNSPECIFIED INGREDIENT
  6. TACROLIMUS [Concomitant]
     Active Substance: TACROLIMUS
  7. MYCOPHENOLATE MOFETIL [Concomitant]
     Active Substance: MYCOPHENOLATE MOFETIL
  8. VORICONAZOLE [Suspect]
     Active Substance: VORICONAZOLE
  9. DOXYCYCLINE [Suspect]
     Active Substance: DOXYCYCLINE

REACTIONS (1)
  - Drug ineffective [Unknown]
